FAERS Safety Report 10438145 (Version 2)
Quarter: 2014Q3

REPORT INFORMATION
  Report Type: Spontaneous
  Country: US (occurrence: None)
  Receive Date: 20140904
  Receipt Date: 20140915
  Transmission Date: 20150326
  Serious: Yes (Hospitalization)
  Sender: FDA-Public Use
  Company Number: 20140579

PATIENT
  Age: 39 Year
  Sex: Female

DRUGS (1)
  1. PROGESTERONE. [Suspect]
     Active Substance: PROGESTERONE
     Indication: IN VITRO FERTILISATION
     Route: 030

REACTIONS (13)
  - Dizziness [None]
  - Treatment failure [None]
  - Venous pressure jugular increased [None]
  - Cough [None]
  - Pleural effusion [None]
  - Ejection fraction decreased [None]
  - Hypokinesia [None]
  - Eosinophilic pneumonia [None]
  - Orthopnoea [None]
  - Reaction to drug excipients [None]
  - Reaction to preservatives [None]
  - Dyspnoea exertional [None]
  - Type IV hypersensitivity reaction [None]
